FAERS Safety Report 7079668-X (Version None)
Quarter: 2010Q4

REPORT INFORMATION
  Report Type: 
  Country: None (occurrence: None)
  Receive Date: 20101102
  Receipt Date: 20101021
  Transmission Date: 20110411
  Serious: Yes (Hospitalization)
  Sender: FDA-Public Use
  Company Number: PHHO2010US15326

PATIENT
  Sex: Male
  Weight: 97.052 kg

DRUGS (7)
  1. AFINITOR [Suspect]
     Indication: RENAL CELL CARCINOMA
     Dosage: 35 MG WEEKLY
     Route: 048
     Dates: start: 20100913
  2. COMPARATOR SORAFENIB [Suspect]
     Indication: RENAL CELL CARCINOMA
     Dosage: 400 MG, QD
     Route: 048
     Dates: start: 20100913
  3. COMPARATOR SORAFENIB [Suspect]
     Dosage: 200 MG, QD
     Route: 048
     Dates: start: 20100928
  4. MICARDIS [Concomitant]
  5. CARAFATE [Concomitant]
  6. LEVOXYL [Concomitant]
  7. AMIODARONE HCL [Concomitant]

REACTIONS (3)
  - CEREBROVASCULAR ACCIDENT [None]
  - COORDINATION ABNORMAL [None]
  - MUSCULAR WEAKNESS [None]
